FAERS Safety Report 12810966 (Version 1)
Quarter: 2016Q4

REPORT INFORMATION
  Report Type: Spontaneous
  Country: BR (occurrence: BR)
  Receive Date: 20161005
  Receipt Date: 20161005
  Transmission Date: 20170207
  Serious: Yes (Hospitalization, Disabling, Other)
  Sender: FDA-Public Use
  Company Number: BR-GLAXOSMITHKLINE-BR2016GSK140092

PATIENT
  Age: 47 Year
  Sex: Male

DRUGS (1)
  1. SERETIDE [Suspect]
     Active Substance: FLUTICASONE PROPIONATE\SALMETEROL XINAFOATE
     Indication: PRODUCT USED FOR UNKNOWN INDICATION
     Dosage: UNK
     Dates: end: 20160918

REACTIONS (6)
  - Eye disorder [Recovered/Resolved]
  - Aphasia [Not Recovered/Not Resolved]
  - Drug administration error [Unknown]
  - Paralysis [Unknown]
  - Cerebrovascular accident [Not Recovered/Not Resolved]
  - Asthmatic crisis [Unknown]

NARRATIVE: CASE EVENT DATE: 2013
